FAERS Safety Report 7502758-1 (Version None)
Quarter: 2011Q2

REPORT INFORMATION
  Report Type: 
  Country: None (occurrence: None)
  Receive Date: 20110525
  Receipt Date: 20110518
  Transmission Date: 20111010
  Serious: Yes (Other)
  Sender: FDA-Public Use
  Company Number: GB-PFIZER INC-2011107856

PATIENT
  Age: 55 Year
  Sex: Male

DRUGS (1)
  1. VARENICLINE TARTRATE [Suspect]
     Indication: SMOKING CESSATION THERAPY
     Dosage: UNK

REACTIONS (6)
  - SUICIDAL IDEATION [None]
  - DEPRESSION [None]
  - WEIGHT INCREASED [None]
  - HYPERPHAGIA [None]
  - NAUSEA [None]
  - ABDOMINAL PAIN UPPER [None]
